FAERS Safety Report 7078388-5 (Version None)
Quarter: 2010Q4

REPORT INFORMATION
  Report Type: 
  Country: None (occurrence: None)
  Receive Date: 20101101
  Receipt Date: 20101101
  Transmission Date: 20110411
  Serious: Yes (Other)
  Sender: FDA-Public Use
  Company Number: None

PATIENT
  Age: 33 Year
  Sex: Male
  Weight: 74.8435 kg

DRUGS (1)
  1. LEVAQUIN [Suspect]
     Indication: LUNG INFECTION
     Dates: start: 20100828, end: 20101031

REACTIONS (5)
  - HYPOAESTHESIA [None]
  - INSOMNIA [None]
  - MUSCLE CONTRACTIONS INVOLUNTARY [None]
  - PARAESTHESIA [None]
  - TENDON DISORDER [None]
